FAERS Safety Report 9743388 (Version 1)
Quarter: 2013Q4

REPORT INFORMATION
  Report Type: Spontaneous
  Country: US (occurrence: US)
  Receive Date: 20131210
  Receipt Date: 20131210
  Transmission Date: 20140711
  Serious: No
  Sender: FDA-Public Use
  Company Number: US-TEVA-379758USA

PATIENT
  Sex: Female
  Weight: 65.38 kg

DRUGS (1)
  1. PARAGARD 380A [Suspect]
     Indication: CONTRACEPTION
     Route: 015
     Dates: start: 20120326, end: 20120604

REACTIONS (3)
  - Pain [Recovered/Resolved]
  - Discomfort [Recovered/Resolved]
  - Menstruation irregular [Recovered/Resolved]
